FAERS Safety Report 9910307 (Version 2)
Quarter: 2014Q1

REPORT INFORMATION
  Report Type: Report from Study
  Country: CN (occurrence: CN)
  Receive Date: 20140219
  Receipt Date: 20140306
  Transmission Date: 20141002
  Serious: Yes (Hospitalization)
  Sender: FDA-Public Use
  Company Number: CN-AMGEN-CHNCT2014011353

PATIENT
  Age: 44 Year
  Sex: Female

DRUGS (4)
  1. DARBEPOETIN ALFA [Suspect]
     Indication: NEPHROGENIC ANAEMIA
     Dosage: 40 MUG/WEEK
     Route: 042
     Dates: start: 20140128
  2. EPOETIN ALFA [Suspect]
     Indication: NEPHROGENIC ANAEMIA
     Dosage: 9000IU, WEEK
     Route: 042
     Dates: start: 20131203, end: 20140128
  3. BENIDIPINE HYDROCHLORIDE [Concomitant]
     Dosage: 4 MG, QD
     Route: 065
     Dates: start: 20130808
  4. AROTINOLOL HYDROCHLORIDE [Concomitant]
     Dosage: 10 MG, BID
     Route: 065
     Dates: start: 2013

REACTIONS (1)
  - Arteriovenous fistula occlusion [Recovering/Resolving]
